FAERS Safety Report 9769350 (Version 1)
Quarter: 2013Q4

REPORT INFORMATION
  Report Type: Spontaneous
  Country: US (occurrence: None)
  Receive Date: 20131217
  Receipt Date: 20131217
  Transmission Date: 20140711
  Serious: Yes (Disabling)
  Sender: FDA-Public Use
  Company Number: None

PATIENT
  Age: 61 Year
  Sex: Male
  Weight: 85.73 kg

DRUGS (5)
  1. ASPIRIN 81 MG [Suspect]
     Indication: COAGULOPATHY
     Dosage: 1 PILL A DAY
     Route: 048
     Dates: start: 201302
  2. CITALOPRAM 40 MG [Concomitant]
  3. TRAZODONE 100 MG [Concomitant]
  4. TRAMADOL GABAPENTIN [Concomitant]
  5. ZOLPIDEM TARTRATE [Concomitant]

REACTIONS (3)
  - Product quality issue [None]
  - Blister [None]
  - Back pain [None]
